FAERS Safety Report 16499519 (Version 4)
Quarter: 2019Q3

REPORT INFORMATION
  Report Type: Spontaneous
  Country: AU (occurrence: AU)
  Receive Date: 20190701
  Receipt Date: 20190729
  Transmission Date: 20191004
  Serious: Yes (Death, Other)
  Sender: FDA-Public Use
  Company Number: AU-ROCHE-2344930

PATIENT
  Age: 8 Year
  Sex: Male
  Weight: 20 kg

DRUGS (3)
  1. DEXAMETHASONE. [Concomitant]
     Active Substance: DEXAMETHASONE
     Dosage: 0.5MG/ 24HOURS
     Route: 058
     Dates: start: 20190622
  2. MORPHINE [Concomitant]
     Active Substance: MORPHINE
     Dosage: 10MG/24HOURS
     Route: 058
  3. RIVOTRIL [Suspect]
     Active Substance: CLONAZEPAM
     Indication: PRODUCT USED FOR UNKNOWN INDICATION
     Dosage: 1MG/1ML - 0011022
     Route: 058
     Dates: start: 20190411, end: 20190625

REACTIONS (6)
  - Off label use [Unknown]
  - Product administration error [Unknown]
  - Neoplasm malignant [Unknown]
  - Product use issue [Unknown]
  - Injection site reaction [Unknown]
  - Ill-defined disorder [Fatal]

NARRATIVE: CASE EVENT DATE: 20190622
